FAERS Safety Report 8760289 (Version 1)
Quarter: 2012Q4

REPORT INFORMATION
  Report Type: Spontaneous
  Country: US (occurrence: None)
  Receive Date: 20120829
  Receipt Date: 20120829
  Transmission Date: 20130627
  Serious: Yes (Hospitalization)
  Sender: FDA-Public Use
  Company Number: None

PATIENT
  Age: 46 Year
  Sex: Male
  Weight: 90.7 kg

DRUGS (2)
  1. VANCOMYCIN [Suspect]
     Route: 042
     Dates: start: 20120727, end: 20120729
  2. VANCOMYCIN [Suspect]
     Route: 042
     Dates: start: 20120729, end: 20120802

REACTIONS (2)
  - Blood creatinine increased [None]
  - Drug level increased [None]
